FAERS Safety Report 7485487-2 (Version None)
Quarter: 2011Q2

REPORT INFORMATION
  Report Type: 
  Country: None (occurrence: None)
  Receive Date: 20110517
  Receipt Date: 20110502
  Transmission Date: 20111010
  Serious: Yes (Death, Hospitalization)
  Sender: FDA-Public Use
  Company Number: US-CELGENEUS-163-20785-11041472

PATIENT
  Sex: Male

DRUGS (2)
  1. THALOMID [Suspect]
     Indication: MULTIPLE MYELOMA
     Dosage: 200 MILLIGRAM
     Route: 048
     Dates: start: 20050912, end: 20070101
  2. THALOMID [Suspect]
     Dosage: 100 MILLIGRAM
     Route: 048
     Dates: start: 20070901, end: 20101025

REACTIONS (5)
  - PNEUMONIA [None]
  - CARDIAC FAILURE CONGESTIVE [None]
  - RENAL FAILURE [None]
  - DEATH [None]
  - RESPIRATORY DISTRESS [None]
